FAERS Safety Report 5023881-X (Version None)
Quarter: 2006Q2

REPORT INFORMATION
  Report Type: 
  Country: None (occurrence: None)
  Receive Date: 20060606
  Receipt Date: 20060518
  Transmission Date: 20061013
  Serious: Yes (Other)
  Sender: FDA-Public Use
  Company Number: US180134

PATIENT

DRUGS (2)
  1. ENBREL [Suspect]
     Dosage: 25 MG, 2 IN 1 WEEKS, SC
     Route: 058
  2. DOCETAXEL [Concomitant]

REACTIONS (2)
  - PSEUDOMONAL SEPSIS [None]
  - PYREXIA [None]
